FAERS Safety Report 24628288 (Version 2)
Quarter: 2024Q4

REPORT INFORMATION
  Report Type: Report from Study
  Country: JP (occurrence: JP)
  Receive Date: 20241117
  Receipt Date: 20241223
  Transmission Date: 20250115
  Serious: Yes (Other)
  Sender: ALEXION PHARMACEUTICALS
  Company Number: JP-ASTRAZENECA-240108726_013120_P_1

PATIENT
  Age: 69 Year
  Weight: 64 kg

DRUGS (16)
  1. DURVALUMAB [Suspect]
     Active Substance: DURVALUMAB
     Indication: Non-small cell lung cancer
     Dosage: 1500 MILLIGRAM, Q4W
  2. DURVALUMAB [Suspect]
     Active Substance: DURVALUMAB
     Dosage: 1500 MILLIGRAM, Q4W
     Route: 041
  3. DURVALUMAB [Suspect]
     Active Substance: DURVALUMAB
     Dosage: 1500 MILLIGRAM, Q4W
  4. DURVALUMAB [Suspect]
     Active Substance: DURVALUMAB
     Dosage: 1500 MILLIGRAM, Q4W
     Route: 041
  5. TREMELIMUMAB [Suspect]
     Active Substance: TREMELIMUMAB
     Indication: Non-small cell lung cancer
     Dosage: 75 MILLIGRAM
  6. TREMELIMUMAB [Suspect]
     Active Substance: TREMELIMUMAB
     Dosage: 75 MILLIGRAM
     Route: 041
  7. TREMELIMUMAB [Suspect]
     Active Substance: TREMELIMUMAB
     Dosage: 75 MILLIGRAM
  8. TREMELIMUMAB [Suspect]
     Active Substance: TREMELIMUMAB
     Dosage: 75 MILLIGRAM
     Route: 041
  9. CISPLATIN [Concomitant]
     Active Substance: CISPLATIN
     Indication: Non-small cell lung cancer
     Dosage: 100 MILLIGRAM
     Route: 065
  10. CISPLATIN [Concomitant]
     Active Substance: CISPLATIN
     Dosage: 100 MILLIGRAM
     Route: 065
  11. CISPLATIN [Concomitant]
     Active Substance: CISPLATIN
     Dosage: 100 MILLIGRAM
     Route: 065
  12. CISPLATIN [Concomitant]
     Active Substance: CISPLATIN
     Dosage: 100 MILLIGRAM
     Route: 065
  13. PEMETREXED [Concomitant]
     Active Substance: PEMETREXED
     Indication: Non-small cell lung cancer
     Dosage: 800 MILLIGRAM
     Route: 065
  14. PEMETREXED [Concomitant]
     Active Substance: PEMETREXED
     Dosage: 800 MILLIGRAM
     Route: 065
  15. PEMETREXED [Concomitant]
     Active Substance: PEMETREXED
     Dosage: 800 MILLIGRAM
     Route: 065
  16. PEMETREXED [Concomitant]
     Active Substance: PEMETREXED
     Dosage: 800 MILLIGRAM
     Route: 065

REACTIONS (1)
  - Immune-mediated arthritis [Recovered/Resolved]
